FAERS Safety Report 5632009-4 (Version None)
Quarter: 2008Q1

REPORT INFORMATION
  Report Type: 
  Country: None (occurrence: None)
  Receive Date: 20080220
  Receipt Date: 20080211
  Transmission Date: 20080703
  Serious: Yes (Hospitalization)
  Sender: FDA-Public Use
  Company Number: FR-ASTRAZENECA-2008CG00229

PATIENT
  Age: 31428 Day
  Sex: Female

DRUGS (9)
  1. CRESTOR [Suspect]
     Route: 048
     Dates: end: 20080112
  2. TAREG [Suspect]
     Indication: ESSENTIAL HYPERTENSION
     Route: 048
     Dates: end: 20080112
  3. RIVOTRIL [Concomitant]
  4. IKOREL [Concomitant]
  5. VASTAREL [Concomitant]
  6. CELECTOL [Concomitant]
  7. LANTUS [Concomitant]
     Indication: TYPE 2 DIABETES MELLITUS
  8. CALCIPARINE [Concomitant]
     Dates: start: 20080101
  9. SINTROM [Concomitant]
     Dates: start: 20080105

REACTIONS (13)
  - ANAEMIA MACROCYTIC [None]
  - ATRIAL FIBRILLATION [None]
  - CONTUSION [None]
  - CREPITATIONS [None]
  - DIABETES MELLITUS INADEQUATE CONTROL [None]
  - DIALYSIS [None]
  - FALL [None]
  - HYPOVOLAEMIC SHOCK [None]
  - LOSS OF CONSCIOUSNESS [None]
  - OEDEMA [None]
  - RENAL FAILURE ACUTE [None]
  - RHABDOMYOLYSIS [None]
  - SUBCUTANEOUS HAEMATOMA [None]
